FAERS Safety Report 23502528 (Version 1)
Quarter: 2024Q1

REPORT INFORMATION
  Report Type: Spontaneous
  Country: US (occurrence: US)
  Receive Date: 20240208
  Receipt Date: 20240208
  Transmission Date: 20240410
  Serious: No
  Sender: FDA-Public Use
  Company Number: US-INTRA-CELLULAR THERAPIES, INC.-2023ICT00511

PATIENT
  Sex: Male

DRUGS (2)
  1. CAPLYTA [Suspect]
     Active Substance: LUMATEPERONE
     Indication: Depression
     Dosage: 10.5 MG, 1X/DAY
     Dates: start: 202210
  2. CAPLYTA [Suspect]
     Active Substance: LUMATEPERONE
     Indication: Obsessive-compulsive disorder
     Dosage: 21 MG BY DOUBLING THE 10.5 MG DOSE

REACTIONS (3)
  - Off label use [Not Recovered/Not Resolved]
  - Discomfort [Not Recovered/Not Resolved]
  - Anxiety [Not Recovered/Not Resolved]
